FAERS Safety Report 7810154-2 (Version None)
Quarter: 2011Q4

REPORT INFORMATION
  Report Type: 
  Country: None (occurrence: None)
  Receive Date: 20111012
  Receipt Date: 20111010
  Transmission Date: 20120403
  Serious: Yes (Hospitalization, Other)
  Sender: FDA-Public Use
  Company Number: US-AMGEN-USASP2011017437

PATIENT
  Age: 59 Year
  Sex: Female
  Weight: 95 kg

DRUGS (15)
  1. NPLATE [Suspect]
     Indication: THROMBOCYTOPENIA
  2. LEVOTHYROXINE SODIUM [Concomitant]
     Dosage: 50 MUG, QD
  3. LACTULOSE [Concomitant]
  4. METFORMIN HYDROCHLORIDE [Concomitant]
     Dosage: 1000 MG, QD
  5. CORGARD [Concomitant]
     Dosage: 40 MG, QD
  6. IVIGLOB-EX [Concomitant]
     Indication: IDIOPATHIC THROMBOCYTOPENIC PURPURA
  7. NADOL [Concomitant]
     Dosage: 40 MG, UNK
  8. NPLATE [Suspect]
     Indication: IDIOPATHIC THROMBOCYTOPENIC PURPURA
     Dosage: 240 MUG, QWK
     Dates: start: 20110128, end: 20110318
  9. OMEPRAZOLE [Concomitant]
     Dosage: 20 MG, QD
  10. REGLAN [Concomitant]
     Dosage: 5 MG, UNK
  11. SPIRONOLACTONE [Concomitant]
     Dosage: 25 MG, UNK
  12. PREDNISONE TAB [Concomitant]
     Indication: INFLAMMATION
     Dosage: 10 MG, UNK
     Dates: start: 20110110
  13. DEXTROAMPHETAMINE                  /00016601/ [Concomitant]
     Dosage: 5 MG, UNK
  14. EFFEXOR XR [Concomitant]
     Dosage: 150 MG, QD
  15. LASIX [Concomitant]
     Indication: POLYURIA
     Dosage: 40 MG, BID
     Route: 048
     Dates: start: 20111003

REACTIONS (2)
  - DEEP VEIN THROMBOSIS [None]
  - OEDEMA PERIPHERAL [None]
